FAERS Safety Report 4442921-X (Version None)
Quarter: 2004Q3

REPORT INFORMATION
  Report Type: 
  Country: None (occurrence: None)
  Receive Date: 20040907
  Receipt Date: 20040907
  Transmission Date: 20050211
  Serious: Yes (Hospitalization)
  Sender: FDA-Public Use
  Company Number: None

PATIENT
  Sex: Male
  Weight: 199.5 kg

DRUGS (2)
  1. PROCARBAZINE 250 MG/M2 [Suspect]
     Indication: BRAIN NEOPLASM
     Dosage: 2500 MG OVER 5 D [THIS CYCLE]
     Dates: start: 20040806, end: 20040810
  2. THALIDOMIDE 800 MG [Suspect]
     Indication: BRAIN NEOPLASM
     Dosage: 800 MG Q HS
     Dates: start: 20040312

REACTIONS (4)
  - NEUTROPENIA [None]
  - ORAL CANDIDIASIS [None]
  - PNEUMONIA PRIMARY ATYPICAL [None]
  - PYREXIA [None]
